FAERS Safety Report 6676095-1 (Version None)
Quarter: 2010Q2

REPORT INFORMATION
  Report Type: 
  Country: None (occurrence: None)
  Receive Date: 20100412
  Receipt Date: 20100401
  Transmission Date: 20101027
  Serious: Yes (Life-Threatening)
  Sender: FDA-Public Use
  Company Number: GB-PFIZER INC-2010041559

PATIENT
  Age: 41 Year
  Sex: Female
  Weight: 80 kg

DRUGS (2)
  1. CHAMPIX [Suspect]
     Indication: SMOKING CESSATION THERAPY
     Dosage: 1 MG, UNK
     Route: 048
     Dates: start: 20100101, end: 20100101
  2. NORETHINDRONE ACETATE AND ETHINYL ESTRADIOL [Concomitant]
     Indication: HYSTERECTOMY
     Dosage: UNK

REACTIONS (2)
  - ANAPHYLACTIC REACTION [None]
  - DEPRESSION [None]
